FAERS Safety Report 6455966-5 (Version None)
Quarter: 2009Q4

REPORT INFORMATION
  Report Type: 
  Country: None (occurrence: None)
  Receive Date: 20091125
  Receipt Date: 20091113
  Transmission Date: 20100525
  Serious: Yes (Hospitalization)
  Sender: FDA-Public Use
  Company Number: US-PFIZER INC-2009297638

PATIENT
  Sex: Male

DRUGS (1)
  1. SUTENT [Suspect]
     Indication: RENAL CELL CARCINOMA
     Dosage: 50 MG, 1X/DAY, X28 DAYS Q42 DAYS
     Dates: start: 20091023

REACTIONS (3)
  - ASTHENIA [None]
  - BLOOD PRESSURE FLUCTUATION [None]
  - GAIT DISTURBANCE [None]
